FAERS Safety Report 15452682 (Version 3)
Quarter: 2018Q4

REPORT INFORMATION
  Report Type: Report from Study
  Country: CA (occurrence: CA)
  Receive Date: 20181001
  Receipt Date: 20181101
  Transmission Date: 20190204
  Serious: Yes (Other)
  Sender: FDA-Public Use
  Company Number: CA-JNJFOC-20180932387

PATIENT
  Age: 27 Year
  Sex: Female
  Weight: 53 kg

DRUGS (5)
  1. SIMPONI [Suspect]
     Active Substance: GOLIMUMAB
     Indication: COLITIS ULCERATIVE
     Route: 058
     Dates: start: 20181002
  2. SIMPONI [Suspect]
     Active Substance: GOLIMUMAB
     Indication: COLITIS ULCERATIVE
     Dosage: STRENGTH = 50 MG
     Route: 058
     Dates: start: 20180912
  3. SIMPONI [Suspect]
     Active Substance: GOLIMUMAB
     Indication: ANKYLOSING SPONDYLITIS
     Dosage: STRENGTH = 50 MG
     Route: 058
     Dates: start: 20180912
  4. SIMPONI [Suspect]
     Active Substance: GOLIMUMAB
     Indication: ANKYLOSING SPONDYLITIS
     Route: 058
     Dates: start: 20181002
  5. PNEUMOVAX 23 [Suspect]
     Active Substance: PNEUMOCOCCAL VACCINE, POLYVALENT 23
     Indication: PRODUCT USED FOR UNKNOWN INDICATION
     Route: 065

REACTIONS (9)
  - Musculoskeletal stiffness [Not Recovered/Not Resolved]
  - Vaccination complication [Not Recovered/Not Resolved]
  - Back pain [Unknown]
  - Diarrhoea [Recovered/Resolved]
  - Decreased appetite [Unknown]
  - Cellulitis [Recovered/Resolved]
  - Haematochezia [Recovering/Resolving]
  - Limb discomfort [Not Recovered/Not Resolved]
  - Fatigue [Unknown]

NARRATIVE: CASE EVENT DATE: 2018
